FAERS Safety Report 21132822 (Version 2)
Quarter: 2022Q3

REPORT INFORMATION
  Report Type: Spontaneous
  Country: US (occurrence: US)
  Receive Date: 20220726
  Receipt Date: 20220909
  Transmission Date: 20221027
  Serious: No
  Sender: FDA-Public Use
  Company Number: US-SMITH AND NEPHEW, INC-2022SMT00117

PATIENT
  Age: 16 Year
  Sex: Female
  Weight: 31.746 kg

DRUGS (2)
  1. COLLAGENASE SANTYL [Suspect]
     Active Substance: COLLAGENASE CLOSTRIDIUM HISTOLYTICUM
     Indication: Decubitus ulcer
     Dosage: A SMALL AMOUNT ON WOUND LOCATED ON HER BACK AND ON HER BUTTOCKS, 2X/DAY
     Route: 061
     Dates: start: 20220401
  2. TYLENOL [Concomitant]
     Active Substance: ACETAMINOPHEN

REACTIONS (1)
  - No adverse event [Recovered/Resolved]

NARRATIVE: CASE EVENT DATE: 20220401
